FAERS Safety Report 7078459-3 (Version None)
Quarter: 2010Q4

REPORT INFORMATION
  Report Type: 
  Country: None (occurrence: None)
  Receive Date: 20101102
  Receipt Date: 20101018
  Transmission Date: 20110411
  Serious: Yes (Hospitalization)
  Sender: FDA-Public Use
  Company Number: PHFR2010GB04956

PATIENT
  Sex: Female

DRUGS (2)
  1. TEGRETOL [Suspect]
  2. TEGRETOL-XR [Suspect]

REACTIONS (2)
  - AMNESIA [None]
  - CONVULSION [None]
